FAERS Safety Report 5815116-2 (Version None)
Quarter: 2008Q3

REPORT INFORMATION
  Report Type: 
  Country: None (occurrence: None)
  Receive Date: 20080718
  Receipt Date: 20080707
  Transmission Date: 20090109
  Serious: Yes (Other)
  Sender: FDA-Public Use
  Company Number: HK-MERCK-0807HKG00003

PATIENT
  Age: 20 Year
  Sex: Male

DRUGS (2)
  1. SINGULAIR [Suspect]
     Route: 048
  2. [THERAPY UNSPECIFIED] [Concomitant]
     Indication: DEPRESSION
     Route: 065

REACTIONS (1)
  - SUICIDAL IDEATION [None]
